FAERS Safety Report 18831624 (Version 1)
Quarter: 2021Q1

REPORT INFORMATION
  Report Type: Spontaneous
  Country: US (occurrence: US)
  Receive Date: 20210201
  Receipt Date: 20210201
  Transmission Date: 20210419
  Serious: No
  Sender: FDA-Public Use
  Company Number: US-ABBVIE-21K-163-3719771-00

PATIENT
  Age: 17 Year
  Sex: Female
  Weight: 58.11 kg

DRUGS (2)
  1. HUMIRA [Suspect]
     Active Substance: ADALIMUMAB
     Route: 058
     Dates: start: 202009
  2. HUMIRA [Suspect]
     Active Substance: ADALIMUMAB
     Indication: JUVENILE IDIOPATHIC ARTHRITIS
     Route: 058
     Dates: start: 202007, end: 202009

REACTIONS (11)
  - Papule [Not Recovered/Not Resolved]
  - Injection site pruritus [Recovering/Resolving]
  - Arthropod bite [Recovering/Resolving]
  - Erythema [Recovered/Resolved]
  - Injection site erythema [Recovered/Resolved]
  - Ear infection [Recovered/Resolved]
  - Crohn^s disease [Not Recovered/Not Resolved]
  - Pruritus [Recovered/Resolved]
  - Nasopharyngitis [Recovered/Resolved]
  - Injection site urticaria [Recovered/Resolved]
  - Injection site papule [Recovered/Resolved]

NARRATIVE: CASE EVENT DATE: 202009
